FAERS Safety Report 9015077 (Version 1)
Quarter: 2013Q1

REPORT INFORMATION
  Report Type: Spontaneous
  Country: US (occurrence: None)
  Receive Date: 20130109
  Receipt Date: 20130109
  Transmission Date: 20140127
  Serious: Yes (Hospitalization)
  Sender: FDA-Public Use
  Company Number: None

PATIENT
  Sex: Male
  Weight: 73.4 kg

DRUGS (9)
  1. PEMETREXED [Suspect]
  2. BEVACIZUMAB [Suspect]
  3. CARBOPLATIN [Suspect]
  4. PACLITAXEL (TAXOL) [Suspect]
  5. ADVAIR DISKUS [Concomitant]
  6. DEXAMETHASONE [Concomitant]
  7. FOLIC ACID [Concomitant]
  8. POTASSIUM CHLORIDE ER [Concomitant]
  9. PROAIR HFA [Concomitant]

REACTIONS (5)
  - Chills [None]
  - Pyrexia [None]
  - Asthenia [None]
  - Vomiting [None]
  - Pneumonia [None]
